FAERS Safety Report 9689258 (Version 1)
Quarter: 2013Q4

REPORT INFORMATION
  Report Type: Report from Study
  Country: US (occurrence: US)
  Receive Date: 20131114
  Receipt Date: 20131114
  Transmission Date: 20140711
  Serious: Yes (Other)
  Sender: FDA-Public Use
  Company Number: US-ABBVIE-13P-163-1169075-00

PATIENT
  Age: 23 Year
  Sex: Female
  Weight: 55.84 kg

DRUGS (4)
  1. LUPRON DEPOT [Suspect]
     Indication: ENDOMETRIOSIS
     Dates: start: 20130820
  2. IBUPROFEN [Concomitant]
     Indication: PAIN
  3. NORETHINDRONE [Concomitant]
     Indication: ENDOMETRIOSIS
  4. NAPROXEN [Concomitant]
     Indication: PAIN

REACTIONS (5)
  - Abortion spontaneous [Unknown]
  - Vaginal discharge [Recovered/Resolved]
  - Abdominal pain [Unknown]
  - Vaginal haemorrhage [Recovered/Resolved]
  - Vaginal haemorrhage [Recovered/Resolved]
